FAERS Safety Report 6349791-3 (Version None)
Quarter: 2009Q3

REPORT INFORMATION
  Report Type: 
  Country: None (occurrence: None)
  Receive Date: 20090911
  Receipt Date: 20090908
  Transmission Date: 20100115
  Serious: Yes (Death, Other)
  Sender: FDA-Public Use
  Company Number: JP-SANOFI-SYNTHELABO-A01200905571

PATIENT
  Sex: Female

DRUGS (5)
  1. FOLINIC ACID [Suspect]
  2. CALCIUM LEVOFOLINATE [Suspect]
     Indication: COLON CANCER METASTATIC
     Dosage: 100 MG
     Route: 041
     Dates: start: 20090211, end: 20090211
  3. FLUOROURACIL [Suspect]
     Indication: COLON CANCER METASTATIC
     Dosage: 500 MG
     Route: 040
     Dates: start: 20090211, end: 20090211
  4. AVASTIN [Suspect]
     Indication: COLON CANCER METASTATIC
     Route: 041
     Dates: start: 20090127, end: 20090210
  5. ELPLAT [Suspect]
     Indication: COLON CANCER METASTATIC
     Dosage: 100 MG
     Route: 041
     Dates: start: 20090210, end: 20090210

REACTIONS (4)
  - CEREBELLAR HAEMORRHAGE [None]
  - MALAISE [None]
  - NEUROPATHY PERIPHERAL [None]
  - SENSE OF OPPRESSION [None]
